FAERS Safety Report 8330047-4 (Version None)
Quarter: 2012Q2

REPORT INFORMATION
  Report Type: 
  Country: None (occurrence: None)
  Receive Date: 20120426
  Receipt Date: 20120425
  Transmission Date: 20120825
  Serious: Yes (Other)
  Sender: FDA-Public Use
  Company Number: 2012032022

PATIENT

DRUGS (1)
  1. PRIVIGEN [Suspect]

REACTIONS (6)
  - ANAEMIA [None]
  - OFF LABEL USE [None]
  - BLOOD LACTATE DEHYDROGENASE INCREASED [None]
  - INTRAVASCULAR HAEMOLYSIS [None]
  - NAUSEA [None]
  - JAUNDICE [None]
